FAERS Safety Report 6805701-3 (Version None)
Quarter: 2010Q2

REPORT INFORMATION
  Report Type: 
  Country: None (occurrence: None)
  Receive Date: 20100628
  Receipt Date: 20080730
  Transmission Date: 20101027
  Serious: Yes (Other)
  Sender: FDA-Public Use
  Company Number: US-PFIZER INC-2008061995

PATIENT
  Sex: Male
  Weight: 86.2 kg

DRUGS (4)
  1. SUTENT [Suspect]
     Indication: RENAL CANCER
     Dosage: DAILY:EVERY DAY
     Dates: start: 20080501
  2. VASOTEC [Concomitant]
  3. LIPITOR [Concomitant]
  4. ALLOPURINOL [Concomitant]

REACTIONS (4)
  - DRY MOUTH [None]
  - FATIGUE [None]
  - GENITAL RASH [None]
  - RASH VESICULAR [None]
